FAERS Safety Report 6924470-X (Version None)
Quarter: 2010Q3

REPORT INFORMATION
  Report Type: 
  Country: None (occurrence: None)
  Receive Date: 20100811
  Receipt Date: 20100804
  Transmission Date: 20110219
  Serious: Yes (Hospitalization)
  Sender: FDA-Public Use
  Company Number: CRC-10-125

PATIENT
  Age: 62 Year
  Sex: Male
  Weight: 93.182 kg

DRUGS (9)
  1. METFORMIN HCL [Suspect]
     Indication: TYPE 2 DIABETES MELLITUS
     Dosage: SEE IMAGE
     Route: 048
     Dates: start: 20090630, end: 20091123
  2. METFORMIN HCL [Suspect]
     Indication: TYPE 2 DIABETES MELLITUS
     Dosage: SEE IMAGE
     Route: 048
     Dates: start: 20091123, end: 20100614
  3. STUDY DRUG DUTOGLIPTIN (DOUBLE-BLIND) [Suspect]
     Indication: TYPE 2 DIABETES MELLITUS
     Dosage: ONE IN ONE DAY; ORAL
     Route: 048
     Dates: start: 20091123, end: 20100614
  4. GLIMEPIRIDE [Suspect]
     Indication: TYPE 2 DIABETES MELLITUS
     Dosage: 4MG ONCE DAILY; ORAL
     Route: 048
     Dates: start: 20091123, end: 20100614
  5. ACTOS [Suspect]
     Indication: TYPE 2 DIABETES MELLITUS
     Dosage: 30MG; ONE IN ONE DAY; ORAL
     Route: 048
     Dates: start: 20100419, end: 20100518
  6. GUANFACINE HYDROCHLORIDE [Concomitant]
  7. LISINOPRIL [Concomitant]
  8. LEXAPRO [Concomitant]
  9. SOMA [Concomitant]

REACTIONS (5)
  - DEHYDRATION [None]
  - DIZZINESS [None]
  - HYPERHIDROSIS [None]
  - HYPOTENSION [None]
  - RENAL FAILURE ACUTE [None]
